FAERS Safety Report 23398945 (Version 1)
Quarter: 2024Q1

REPORT INFORMATION
  Report Type: Spontaneous
  Country: US (occurrence: US)
  Receive Date: 20240112
  Receipt Date: 20240112
  Transmission Date: 20240410
  Serious: No
  Sender: FDA-Public Use
  Company Number: US-FOUNDATIONCONSUMERHC-2023-US-003505

PATIENT
  Age: 69 Year
  Sex: Male
  Weight: 63.5 kg

DRUGS (2)
  1. ALAVERT ALLERGY [Suspect]
     Active Substance: LORATADINE
     Indication: Nasopharyngitis
     Dosage: TOOK 3 TIMES
     Route: 048
     Dates: start: 20230205, end: 20230208
  2. VITAMINS [Concomitant]
     Active Substance: VITAMINS

REACTIONS (7)
  - Drug ineffective for unapproved indication [Recovered/Resolved]
  - Rhinorrhoea [Not Recovered/Not Resolved]
  - Sneezing [Recovered/Resolved]
  - Lacrimation increased [Not Recovered/Not Resolved]
  - Condition aggravated [Not Recovered/Not Resolved]
  - Product use in unapproved indication [Recovered/Resolved]
  - Intentional product misuse [Recovered/Resolved]

NARRATIVE: CASE EVENT DATE: 20230205
